FAERS Safety Report 6993350-6 (Version None)
Quarter: 2010Q3

REPORT INFORMATION
  Report Type: 
  Country: None (occurrence: None)
  Receive Date: 20100917
  Receipt Date: 20100104
  Transmission Date: 20110219
  Serious: Yes (Other)
  Sender: FDA-Public Use
  Company Number: US-ASTRAZENECA-2009SE22831

PATIENT
  Age: 26 Year
  Sex: Male
  Weight: 104.3 kg

DRUGS (5)
  1. SEROQUEL [Suspect]
     Indication: PSYCHOTIC DISORDER
     Route: 048
     Dates: start: 20031201
  2. GEODON [Concomitant]
     Dates: start: 20040501, end: 20071101
  3. ZYPREXA [Concomitant]
     Dates: start: 20050501
  4. SYMBYAX [Concomitant]
  5. KLONOPIN [Concomitant]
     Dates: start: 20060701

REACTIONS (3)
  - DIABETES MELLITUS [None]
  - TARDIVE DYSKINESIA [None]
  - TREMOR [None]
